FAERS Safety Report 4723809-3 (Version None)
Quarter: 2005Q3

REPORT INFORMATION
  Report Type: 
  Country: None (occurrence: None)
  Receive Date: 20050719
  Receipt Date: 20050705
  Transmission Date: 20060218
  Serious: Yes (Hospitalization)
  Sender: FDA-Public Use
  Company Number: 2005-01278

PATIENT
  Sex: Male

DRUGS (6)
  1. IMMUCYST [Suspect]
     Indication: BLADDER CANCER
     Dosage: 81 MG WEEKLY (81.0 MG) I.VES.
     Dates: start: 20050114
  2. DIGOXIN [Concomitant]
  3. VERAPAMIL [Concomitant]
  4. WARFARIN [Concomitant]
  5. FUROSEMIDE [Concomitant]
  6. ENALAPRIL MALEATE [Concomitant]

REACTIONS (8)
  - BOVINE TUBERCULOSIS [None]
  - GENITAL DISCHARGE [None]
  - HYDROCELE MALE INFECTED [None]
  - ORCHITIS [None]
  - PAIN [None]
  - TESTICULAR SWELLING [None]
  - WOUND DECOMPOSITION [None]
  - WOUND SECRETION [None]
